FAERS Safety Report 4600932-5 (Version None)
Quarter: 2005Q1

REPORT INFORMATION
  Report Type: 
  Country: None (occurrence: None)
  Receive Date: 20050127
  Receipt Date: 20041022
  Transmission Date: 20050727
  Serious: No
  Sender: FDA-Public Use
  Company Number: USA041082141

PATIENT
  Age: 10 Year
  Sex: Female
  Weight: 32 kg

DRUGS (1)
  1. STRATTERA [Suspect]
     Indication: ATTENTION DEFICIT/HYPERACTIVITY DISORDER
     Dosage: 25 MG
     Dates: start: 20041007

REACTIONS (3)
  - ABDOMINAL PAIN UPPER [None]
  - NAUSEA [None]
  - STOMACH DISCOMFORT [None]
